FAERS Safety Report 14928805 (Version 6)
Quarter: 2018Q3

REPORT INFORMATION
  Report Type: Spontaneous
  Country: JP (occurrence: JP)
  Receive Date: 20180523
  Receipt Date: 20180717
  Transmission Date: 20181010
  Serious: Yes (Death, Life-Threatening, Hospitalization, Other)
  Sender: FDA-Public Use
  Company Number: JP-PFIZER INC-2018210117

PATIENT
  Age: 67 Year
  Sex: Female
  Weight: 52 kg

DRUGS (31)
  1. ALDACTONE A [Suspect]
     Active Substance: SPIRONOLACTONE
     Indication: OEDEMA
     Dosage: 25 MG, 1X/DAY
     Route: 048
     Dates: start: 20151124, end: 20151207
  2. KEISHIBUKURYOGAN [Concomitant]
     Active Substance: HERBALS
     Indication: DECREASED APPETITE
  3. JUZENTAIHOTO /07985601/ [Concomitant]
     Active Substance: HERBALS
     Indication: DECREASED APPETITE
  4. DECADRON [Concomitant]
     Active Substance: DEXAMETHASONE
     Indication: HEPATIC ANGIOSARCOMA
     Dosage: 2 ML, 1X/DAY
     Route: 042
     Dates: start: 20151117, end: 20151208
  5. CELECOX [Suspect]
     Active Substance: CELECOXIB
     Indication: PAIN MANAGEMENT
     Dosage: 100 MG, 2X/DAY
     Route: 048
     Dates: start: 20151110, end: 20160107
  6. METGLUCO [Concomitant]
     Active Substance: METFORMIN HYDROCHLORIDE
     Indication: DIABETES MELLITUS
     Dosage: 250 MG, 2X/DAY
     Route: 048
     Dates: start: 20151110, end: 20160107
  7. REBAMIPIDE [Concomitant]
     Active Substance: REBAMIPIDE
     Indication: OESOPHAGITIS
  8. DIOVAN [Suspect]
     Active Substance: VALSARTAN
     Indication: HYPERTENSION
     Dosage: 160 MG, 1X/DAY
     Route: 048
     Dates: start: 20151124, end: 20160104
  9. REBAMIPIDE [Concomitant]
     Active Substance: REBAMIPIDE
     Indication: GASTRITIS
     Dosage: 100 MG, 3X/DAY
     Route: 048
     Dates: start: 20151121, end: 20151122
  10. LOXONIN [Concomitant]
     Active Substance: LOXOPROFEN SODIUM
     Indication: PAIN MANAGEMENT
     Dosage: 60 MG, AS NEEDED
     Route: 048
     Dates: start: 20151215
  11. SHIMBUTO [Concomitant]
     Active Substance: HERBALS
     Indication: DECREASED APPETITE
     Dosage: 2.5 G, 3X/DAY
     Route: 048
     Dates: start: 20151215, end: 20160104
  12. ALBUMIN [Concomitant]
     Active Substance: ALBUMIN HUMAN
     Indication: HYPOALBUMINAEMIA
     Dosage: 100 ML, 1X/DAY
     Route: 042
     Dates: start: 20151119, end: 20151121
  13. NEXIUM [Suspect]
     Active Substance: ESOMEPRAZOLE MAGNESIUM
     Indication: OESOPHAGITIS
  14. NEXIUM [Suspect]
     Active Substance: ESOMEPRAZOLE MAGNESIUM
     Indication: ACHLORHYDRIA
  15. KEISHIBUKURYOGAN [Concomitant]
     Active Substance: HERBALS
     Indication: MUSCULAR WEAKNESS
     Dosage: 6 DF, 1X/DAY
     Route: 048
     Dates: start: 20151110, end: 20160107
  16. LOXOPROFEN NA [Concomitant]
     Active Substance: LOXOPROFEN SODIUM
     Indication: PAIN MANAGEMENT
     Dosage: 60 MG, 3X/DAY
     Route: 048
     Dates: start: 20151121, end: 20151122
  17. CISPLATIN. [Concomitant]
     Active Substance: CISPLATIN
     Indication: HEPATIC ANGIOSARCOMA
     Dosage: 20 ML, 1X/DAY
     Route: 042
     Dates: start: 20151117, end: 20151208
  18. LASIX [Concomitant]
     Active Substance: FUROSEMIDE
     Indication: DIURETIC THERAPY
     Dosage: 10 MG, 1X/DAY
     Route: 048
     Dates: start: 20151124, end: 20151207
  19. PURSENNID /00142207/ [Concomitant]
     Active Substance: SENNA LEAF
     Indication: CONSTIPATION
     Dosage: 24 MG, 1X/DAY
     Route: 048
     Dates: start: 20151215, end: 20151228
  20. NEXIUM [Suspect]
     Active Substance: ESOMEPRAZOLE MAGNESIUM
     Indication: GASTRIC PH DECREASED
     Dosage: 20 MG, 1X/DAY
     Route: 048
     Dates: start: 20151124, end: 20160107
  21. JUZENTAIHOTO /07985601/ [Concomitant]
     Active Substance: HERBALS
     Indication: MUSCULAR WEAKNESS
     Dosage: 3.75 G, 2X/DAY
     Route: 048
     Dates: start: 20151110, end: 20160107
  22. JUZENTAIHOTO /07985601/ [Concomitant]
     Active Substance: HERBALS
     Indication: MALAISE
  23. AMLODIPINE [Concomitant]
     Active Substance: AMLODIPINE BESYLATE
     Indication: HYPERTENSION
     Dosage: 5 MG, 1X/DAY
     Route: 048
     Dates: start: 20151225, end: 20160107
  24. VALSARTAN. [Concomitant]
     Active Substance: VALSARTAN
     Indication: HYPERTENSION
     Dosage: 160 MG, 1X/DAY
     Route: 048
     Dates: start: 20151124, end: 20160107
  25. KEISHIBUKURYOGAN [Concomitant]
     Active Substance: HERBALS
     Indication: MALAISE
  26. NORVASC [Concomitant]
     Active Substance: AMLODIPINE BESYLATE
     Indication: HYPERTENSION
     Dosage: 5 MG, 1X/DAY
     Route: 048
     Dates: start: 20151124, end: 20160104
  27. LASIX [Concomitant]
     Active Substance: FUROSEMIDE
     Indication: HYPERTENSION
  28. SHIMBUTO [Concomitant]
     Active Substance: HERBALS
     Indication: EPIGASTRIC DISCOMFORT
  29. SENNOSIDE /00571901/ [Concomitant]
     Active Substance: SENNOSIDES A AND B
     Indication: CONSTIPATION
     Dosage: 24 MG, 1X/DAY
     Route: 048
     Dates: start: 20151228, end: 20160108
  30. ALOXI [Concomitant]
     Active Substance: PALONOSETRON HYDROCHLORIDE
     Indication: HEPATIC ANGIOSARCOMA
     Dosage: 5 ML, 1X/DAY
     Route: 042
     Dates: start: 20151117, end: 20151208
  31. PACLITAXEL. [Concomitant]
     Active Substance: PACLITAXEL
     Indication: HEPATIC ANGIOSARCOMA
     Dosage: 5 ML, 1X/DAY
     Route: 042
     Dates: start: 20151124, end: 20151124

REACTIONS (10)
  - Pruritus generalised [Recovered/Resolved]
  - Hepatic angiosarcoma [Not Recovered/Not Resolved]
  - Toxic epidermal necrolysis [Fatal]
  - Condition aggravated [Not Recovered/Not Resolved]
  - Multiple organ dysfunction syndrome [Fatal]
  - Hypoalbuminaemia [Recovered/Resolved]
  - Generalised erythema [Not Recovered/Not Resolved]
  - Stomatitis [Not Recovered/Not Resolved]
  - Hypovitaminosis [Not Recovered/Not Resolved]
  - Off label use [Unknown]

NARRATIVE: CASE EVENT DATE: 201511
